FAERS Safety Report 8889704 (Version 1)
Quarter: 2012Q4

REPORT INFORMATION
  Report Type: 
  Country: US (occurrence: US)
  Receive Date: 20121107
  Receipt Date: 20121107
  Transmission Date: 20130627
  Serious: Yes (Other)
  Sender: FDA-Public Use
  Company Number: PHHY2012US100337

PATIENT
  Age: 52 Year
  Sex: Male

DRUGS (8)
  1. FLUCONAZOLE [Suspect]
     Dosage: 400 mg, daily
     Route: 048
  2. FLUTICASONE PROPIONATE [Interacting]
     Indication: BRONCHITIS CHRONIC
     Dosage: 250 ug, BID
  3. FLUTICASONE PROPIONATE [Interacting]
     Dosage: 500 ug, BID
  4. FLUTICASONE PROPIONATE [Interacting]
     Route: 045
  5. RITONAVIR [Interacting]
     Indication: HIV INFECTION
  6. DILTIAZEM [Concomitant]
     Indication: HYPERTENSION
  7. ATAZANAVIR [Concomitant]
     Indication: HIV INFECTION
  8. EFAVIRENZ [Concomitant]
     Indication: HIV INFECTION

REACTIONS (15)
  - Cushing^s syndrome [Recovered/Resolved]
  - Adrenal insufficiency [Recovered/Resolved]
  - Oral candidiasis [Unknown]
  - Oedema peripheral [Recovered/Resolved]
  - Muscular weakness [Recovered/Resolved]
  - Fatigue [Recovered/Resolved]
  - Muscle spasms [Recovered/Resolved]
  - Blood glucose increased [Recovered/Resolved]
  - Malaise [Recovered/Resolved]
  - Hypotension [Recovered/Resolved]
  - Heart rate increased [Recovered/Resolved]
  - Stomatitis [Recovered/Resolved]
  - Dysphonia [Recovered/Resolved]
  - Odynophagia [Recovered/Resolved]
  - Drug interaction [Unknown]
